FAERS Safety Report 10003839 (Version 2)
Quarter: 2014Q1

REPORT INFORMATION
  Report Type: Spontaneous
  Country: FR (occurrence: FR)
  Receive Date: 20140312
  Receipt Date: 20140321
  Transmission Date: 20141002
  Serious: Yes (Hospitalization)
  Sender: FDA-Public Use
  Company Number: PHHY2014FR029518

PATIENT
  Age: 32 Year
  Sex: Female

DRUGS (8)
  1. CLOZAPINE [Suspect]
     Indication: SCHIZOAFFECTIVE DISORDER BIPOLAR TYPE
     Dosage: 100 MG, PER DAY
  2. CLOZAPINE [Suspect]
     Dosage: 350 MG, PER DAY
  3. CLOZAPINE [Suspect]
     Dosage: 500 MG, PER DAY
  4. CLOZAPINE [Suspect]
     Dosage: 400 MG, PER DAY
  5. FLUPENTIXOL [Suspect]
     Indication: SCHIZOAFFECTIVE DISORDER BIPOLAR TYPE
  6. RISPERIDONE [Suspect]
     Indication: SCHIZOAFFECTIVE DISORDER BIPOLAR TYPE
  7. DEPAKENE [Concomitant]
  8. DIVALPROEX SODIUM [Concomitant]
     Indication: MOOD ALTERED
     Dosage: 1250 MG, PER DAY

REACTIONS (12)
  - Parotitis [Recovering/Resolving]
  - Salivary hypersecretion [Recovering/Resolving]
  - Ear pain [Recovering/Resolving]
  - Odynophagia [Recovering/Resolving]
  - Parotid gland enlargement [Recovering/Resolving]
  - Oedema [Recovering/Resolving]
  - Inflammation [Recovering/Resolving]
  - Leukocytosis [Recovering/Resolving]
  - Anaemia [Recovering/Resolving]
  - Tachycardia [Recovering/Resolving]
  - Schizoaffective disorder bipolar type [Recovering/Resolving]
  - Drug ineffective [Unknown]
